FAERS Safety Report 11651755 (Version 1)
Quarter: 2015Q4

REPORT INFORMATION
  Report Type: Spontaneous
  Country: US (occurrence: None)
  Receive Date: 20151021
  Receipt Date: 20151021
  Transmission Date: 20160304
  Serious: Yes (Disabling)
  Sender: FDA-Public Use
  Company Number: None

PATIENT
  Age: 55 Year
  Sex: Female
  Weight: 122.47 kg

DRUGS (7)
  1. INSULIN PUMP [Concomitant]
     Active Substance: INSULIN NOS
  2. LOSARTAN. [Concomitant]
     Active Substance: LOSARTAN
  3. DAILY VITAMIN [Concomitant]
     Active Substance: VITAMINS
  4. ATORVASTATIN 20 MG GREENSTONE [Suspect]
     Active Substance: ATORVASTATIN
     Indication: BLOOD CHOLESTEROL INCREASED
     Dosage: AT BEDTINE, TAKEN BY MOUTH
     Dates: start: 20150605, end: 20151019
  5. METOPROLOL [Concomitant]
     Active Substance: METOPROLOL
  6. SYNTHROID [Concomitant]
     Active Substance: LEVOTHYROXINE SODIUM
  7. ASA [Concomitant]
     Active Substance: ASPIRIN

REACTIONS (5)
  - Nightmare [None]
  - Blood glucose increased [None]
  - Bone pain [None]
  - Arthralgia [None]
  - Myalgia [None]

NARRATIVE: CASE EVENT DATE: 20151019
